FAERS Safety Report 24250940 (Version 1)
Quarter: 2024Q3

REPORT INFORMATION
  Report Type: Spontaneous
  Country: US (occurrence: None)
  Receive Date: 20240826
  Receipt Date: 20240826
  Transmission Date: 20241017
  Serious: Yes (Death)
  Sender: Public
  Company Number: None

PATIENT
  Age: 64 Year
  Sex: Male

DRUGS (5)
  1. GLEOSTINE [Suspect]
     Active Substance: LOMUSTINE
     Indication: Brain neoplasm malignant
     Dosage: 160 MG ONCE ORAL
     Route: 048
     Dates: start: 20240528, end: 202408
  2. KEPPRA 500MG [Concomitant]
  3. DEXAMETHASONE 2MG [Concomitant]
  4. MULTIVITAMIN ADULT 50+ [Concomitant]
  5. AVASTIN SOL FOR INJ 16ML (400MG) [Concomitant]

REACTIONS (1)
  - Death [None]

NARRATIVE: CASE EVENT DATE: 20240801
